FAERS Safety Report 8397119-X (Version None)
Quarter: 2012Q2

REPORT INFORMATION
  Report Type: 
  Country: None (occurrence: None)
  Receive Date: 20120530
  Receipt Date: 20120524
  Transmission Date: 20120825
  Serious: Yes (Other)
  Sender: FDA-Public Use
  Company Number: US-ROCHE-1059645

PATIENT
  Sex: Male

DRUGS (1)
  1. ZELBORAF [Suspect]
     Indication: MALIGNANT MELANOMA
     Route: 065

REACTIONS (8)
  - NAUSEA [None]
  - RASH [None]
  - MYALGIA [None]
  - DIARRHOEA [None]
  - BRAIN NEOPLASM [None]
  - OEDEMA PERIPHERAL [None]
  - ARTHRALGIA [None]
  - WEIGHT DECREASED [None]
